FAERS Safety Report 9425733 (Version 2)
Quarter: 2013Q3

REPORT INFORMATION
  Report Type: Report from Study
  Country: ES (occurrence: ES)
  Receive Date: 20130729
  Receipt Date: 20130804
  Transmission Date: 20140515
  Serious: Yes (Life-Threatening)
  Sender: FDA-Public Use
  Company Number: ES-US-EMD SERONO, INC.-7225948

PATIENT
  Age: 41 Year
  Sex: Female

DRUGS (10)
  1. REBIF [Suspect]
     Indication: RELAPSING-REMITTING MULTIPLE SCLEROSIS
     Route: 058
     Dates: start: 20130301, end: 20130617
  2. METHYLPREDNISOLONE [Concomitant]
     Indication: MULTIPLE SCLEROSIS
     Route: 042
     Dates: start: 20130502, end: 20130507
  3. METHYLPREDNISOLONE [Concomitant]
     Route: 042
     Dates: start: 20130516, end: 20130520
  4. DACORTIN [Concomitant]
     Indication: MULTIPLE SCLEROSIS
     Route: 048
     Dates: start: 20130521, end: 20130523
  5. DACORTIN [Concomitant]
     Route: 048
     Dates: start: 20130524, end: 20130526
  6. DACORTIN [Concomitant]
     Route: 048
     Dates: start: 20130527, end: 20130529
  7. DACORTIN [Concomitant]
     Route: 048
     Dates: start: 20130530, end: 20130601
  8. DACORTIN [Concomitant]
     Route: 048
     Dates: start: 20130602, end: 20130604
  9. DACORTIN [Concomitant]
     Route: 048
     Dates: start: 20130605, end: 20130607
  10. DACORTIN [Concomitant]
     Route: 048
     Dates: start: 20130608, end: 20130610

REACTIONS (1)
  - Hepatic enzyme increased [Recovered/Resolved]
